FAERS Safety Report 9708973 (Version 3)
Quarter: 2013Q4

REPORT INFORMATION
  Report Type: Spontaneous
  Country: DK (occurrence: None)
  Receive Date: 20131122
  Receipt Date: 20131230
  Transmission Date: 20140711
  Serious: Yes (Disabling)
  Sender: FDA-Public Use
  Company Number: 2018809

PATIENT
  Age: 72 Year
  Sex: Female

DRUGS (16)
  1. CARBOPLATIN [Suspect]
     Indication: OVARIAN CANCER
     Dosage: 10 MG/ML,  INTRAVENOUS (NOT OTHERWISE SPECIFIED)?
     Route: 042
     Dates: start: 20121126, end: 20130408
  2. PACLITAXEL [Suspect]
     Indication: OVARIAN CANCER
     Dosage: 6 MG/ML, INTRAVENOUS (NOT OTHERWISE SPECIFIED)
     Route: 042
     Dates: start: 20121126, end: 20130408
  3. TIMOLOL [Concomitant]
  4. TRAVOPROST [Concomitant]
  5. INSULIN ASPART [Concomitant]
  6. ZOPICLON [Concomitant]
  7. GLYCERYL TRINITRATE [Concomitant]
  8. NATRIUMCROMOGLICAT [Concomitant]
  9. INSULIN GLARGINE [Concomitant]
  10. ACETYLSALICYLSYRE [Concomitant]
  11. ISOSORBIDE MONONITRATE [Concomitant]
  12. METOCLOPRAMIDE HYDROCHLORIDE [Concomitant]
  13. OMEPRAZOLE [Concomitant]
  14. SIMVASTATIN [Concomitant]
  15. TRAMADOL HYDROCHLORIDE [Concomitant]
  16. AMLODIPINE [Concomitant]

REACTIONS (4)
  - Pulmonary toxicity [None]
  - Lung infiltration [None]
  - Bronchopulmonary disease [None]
  - Interstitial lung disease [None]
